FAERS Safety Report 21211578 (Version 1)
Quarter: 2022Q3

REPORT INFORMATION
  Report Type: Other
  Country: US (occurrence: None)
  Receive Date: 20220815
  Receipt Date: 20220815
  Transmission Date: 20221027
  Serious: Yes (Other)
  Sender: FDA-Public Use
  Company Number: US-ROCHE-3156839

PATIENT
  Sex: Female

DRUGS (1)
  1. OCREVUS [Suspect]
     Active Substance: OCRELIZUMAB
     Indication: Relapsing multiple sclerosis
     Dosage: YES; SUBSEQUENTLY 600MG FOR EVERY 6 MONTHS; DOT: 25/JUL/2022, 13/DEC/2021
     Route: 042
     Dates: start: 20190606

REACTIONS (3)
  - Pneumonia [Unknown]
  - Bronchitis [Unknown]
  - Immunodeficiency [Unknown]
